FAERS Safety Report 6386322-6 (Version None)
Quarter: 2009Q4

REPORT INFORMATION
  Report Type: 
  Country: None (occurrence: None)
  Receive Date: 20091002
  Receipt Date: 20090929
  Transmission Date: 20100525
  Serious: Yes (Other)
  Sender: FDA-Public Use
  Company Number: US-WYE-H08334909

PATIENT
  Sex: Female
  Weight: 46.31 kg

DRUGS (4)
  1. PREMARIN [Suspect]
  2. PROVERA [Suspect]
  3. PREMARIN [Suspect]
  4. DEPO-PROVERA [Suspect]

REACTIONS (1)
  - ENDOMETRIAL CANCER METASTATIC [None]
